FAERS Safety Report 16423460 (Version 2)
Quarter: 2019Q2

REPORT INFORMATION
  Report Type: Report from Study
  Country: None (occurrence: DE)
  Receive Date: 20190612
  Receipt Date: 20190620
  Transmission Date: 20190711
  Serious: Yes (Hospitalization, Other)
  Sender: FDA-Public Use
  Company Number: DE-ABBVIE-19K-062-2816793-00

PATIENT
  Sex: Male
  Weight: 70 kg

DRUGS (11)
  1. MAVIRET [Suspect]
     Active Substance: GLECAPREVIR\PIBRENTASVIR
     Indication: CHRONIC HEPATITIS C
     Route: 048
     Dates: start: 20180703, end: 201809
  2. RAMIPRIL. [Concomitant]
     Active Substance: RAMIPRIL
     Indication: CARDIOVASCULAR DISORDER
  3. TORASEMID [Concomitant]
     Active Substance: TORSEMIDE
     Indication: CHRONIC HEPATITIS C
  4. NOVORAPID [Concomitant]
     Active Substance: INSULIN ASPART
     Indication: PRODUCT USED FOR UNKNOWN INDICATION
     Dosage: FLEXPEN
  5. NITROLINGUAL [Concomitant]
     Active Substance: NITROGLYCERIN
     Indication: CARDIOVASCULAR DISORDER
     Dosage: AS REQUIRED
  6. LANTUS [Concomitant]
     Active Substance: INSULIN GLARGINE
     Indication: PRODUCT USED FOR UNKNOWN INDICATION
  7. CORTISONE [Suspect]
     Active Substance: CORTISONE\HYDROCORTISONE
     Indication: OTITIS MEDIA
  8. BISOPROLOL [Concomitant]
     Active Substance: BISOPROLOL
     Indication: CARDIOVASCULAR DISORDER
  9. L-THYROXIN HENNING [Concomitant]
     Active Substance: LEVOTHYROXINE SODIUM
     Indication: PRODUCT USED FOR UNKNOWN INDICATION
  10. CORTISONE [Suspect]
     Active Substance: CORTISONE\HYDROCORTISONE
     Indication: OTORRHOEA
     Dosage: HIGHLY DOSED
     Route: 065
  11. ASPIRIN. [Concomitant]
     Active Substance: ASPIRIN
     Indication: CARDIOVASCULAR DISORDER

REACTIONS (28)
  - General physical health deterioration [Recovering/Resolving]
  - Bacteriuria [Unknown]
  - Clostridium difficile colitis [Unknown]
  - Hyperglycaemic unconsciousness [Unknown]
  - Thrombocytopenia [Unknown]
  - Oedema peripheral [Unknown]
  - Hepatitis C [Unknown]
  - Hepatic cirrhosis [Recovered/Resolved with Sequelae]
  - Hepatorenal syndrome [Recovering/Resolving]
  - Splenomegaly [Unknown]
  - Cough [Recovering/Resolving]
  - Varices oesophageal [Recovering/Resolving]
  - Ascites [Unknown]
  - Respiratory syncytial virus infection [Unknown]
  - Cholelithiasis [Unknown]
  - Dyspnoea [Recovering/Resolving]
  - Coagulopathy [Unknown]
  - Ototoxicity [Unknown]
  - Abdominal distension [Unknown]
  - Urinary tract infection [Unknown]
  - Infection [Recovering/Resolving]
  - Depressed level of consciousness [Recovering/Resolving]
  - Enterococcal infection [Unknown]
  - Otorrhoea [Recovered/Resolved]
  - Otitis media [Recovering/Resolving]
  - Hepatic encephalopathy [Recovering/Resolving]
  - Fluid intake reduced [Unknown]
  - Otitis media acute [Unknown]

NARRATIVE: CASE EVENT DATE: 2019
